FAERS Safety Report 24328856 (Version 1)
Quarter: 2024Q3

REPORT INFORMATION
  Report Type: Spontaneous
  Country: GB (occurrence: GB)
  Receive Date: 20240917
  Receipt Date: 20240917
  Transmission Date: 20241016
  Serious: Yes (Other)
  Sender: TEVA
  Company Number: GB-MHRA-TPP19399062C7267864YC1725625594615

PATIENT
  Age: 67 Year
  Sex: Male
  Weight: 120 kg

DRUGS (7)
  1. DOXYCYCLINE [Suspect]
     Active Substance: DOXYCYCLINE\DOXYCYCLINE HYCLATE
     Indication: Ill-defined disorder
     Dosage: TWO NOW THEN ONE DAILY (TOTAL 5 DAYS) **AVOID D
     Route: 065
     Dates: start: 20240904
  2. AMOXICILLIN [Concomitant]
     Active Substance: AMOXICILLIN
     Indication: Ill-defined disorder
     Dosage: TIME INTERVAL: 0.33333333 DAYS: TPP YC - PLEASE RECLASSIFY
  3. ATORVASTATIN [Concomitant]
     Active Substance: ATORVASTATIN
     Indication: Ill-defined disorder
     Dosage: AT NIGHT, TPP YC - PLEASE RECLASSIFY
     Dates: start: 20240604
  4. EZETIMIBE [Concomitant]
     Active Substance: EZETIMIBE
     Indication: Ill-defined disorder
     Dosage: TPP YC - PLEASE RECLASSIFY
     Dates: start: 20240604
  5. BISOPROLOL [Concomitant]
     Active Substance: BISOPROLOL\BISOPROLOL FUMARATE
     Indication: Ill-defined disorder
     Dosage: MORNING, TPP YC - PLEASE RECLASSIFY
     Dates: start: 20240416
  6. COCODAMOL [Concomitant]
     Active Substance: ACETAMINOPHEN\CODEINE PHOSPHATE
     Indication: Ill-defined disorder
     Dosage: TAKE 1 OR 2 TABLETS TO BE TAKEN UP TO FOUR  TI..., TPP YC - PLEASE RECLASSIFY
     Dates: start: 20240802, end: 20240814
  7. RAMIPRIL [Concomitant]
     Active Substance: RAMIPRIL
     Indication: Ill-defined disorder
     Dosage: TPP YC - PLEASE RECLASSIFY
     Dates: start: 20240416

REACTIONS (3)
  - Visual impairment [Recovering/Resolving]
  - Headache [Recovering/Resolving]
  - Malaise [Recovering/Resolving]
